FAERS Safety Report 19565268 (Version 3)
Quarter: 2022Q2

REPORT INFORMATION
  Report Type: Spontaneous
  Country: CA (occurrence: CA)
  Receive Date: 20210714
  Receipt Date: 20220401
  Transmission Date: 20220721
  Serious: Yes (Death, Hospitalization, Other)
  Sender: FDA-Public Use
  Company Number: CA-VALIDUS PHARMACEUTICALS LLC-VDP-2021-000033

PATIENT

DRUGS (14)
  1. LASIX [Suspect]
     Active Substance: FUROSEMIDE
     Indication: Product used for unknown indication
     Route: 048
  2. NITROGLYCERIN [Suspect]
     Active Substance: NITROGLYCERIN
     Indication: Product used for unknown indication
     Dosage: 0.2 MG, QH
     Route: 065
  3. RABEPRAZOLE SODIUM [Suspect]
     Active Substance: RABEPRAZOLE SODIUM
     Indication: Product used for unknown indication
     Route: 048
  4. SPIRONOLACTONE [Suspect]
     Active Substance: SPIRONOLACTONE
     Indication: Product used for unknown indication
     Route: 048
  5. ACETAMINOPHEN [Suspect]
     Active Substance: ACETAMINOPHEN
     Indication: Product used for unknown indication
     Route: 065
  6. FUROSEMIDE [Suspect]
     Active Substance: FUROSEMIDE
     Indication: Product used for unknown indication
     Dosage: 80 MG
     Route: 042
     Dates: start: 2020, end: 2020
  7. FUROSEMIDE [Suspect]
     Active Substance: FUROSEMIDE
     Dosage: 40 MG
     Route: 042
  8. FUROSEMIDE [Suspect]
     Active Substance: FUROSEMIDE
     Dosage: 20 MG
     Route: 042
  9. FUROSEMIDE\RESERPINE [Concomitant]
     Active Substance: FUROSEMIDE\RESERPINE
     Indication: Product used for unknown indication
     Dosage: UNK
  10. RABEPRAZOLE [Concomitant]
     Active Substance: RABEPRAZOLE
     Indication: Product used for unknown indication
     Dosage: UNK
  11. SPIRONOLACTONE [Concomitant]
     Active Substance: SPIRONOLACTONE
     Indication: Product used for unknown indication
     Dosage: UNK
  12. TYLENOL [Concomitant]
     Active Substance: ACETAMINOPHEN
     Indication: Product used for unknown indication
     Dosage: UNK
  13. SOLU-MEDROL [Concomitant]
     Active Substance: METHYLPREDNISOLONE SODIUM SUCCINATE
     Indication: Product used for unknown indication
     Route: 065
  14. ETHACRYNIC ACID [Concomitant]
     Active Substance: ETHACRYNIC ACID
     Indication: Product used for unknown indication
     Route: 065

REACTIONS (10)
  - Autoimmune haemolytic anaemia [Fatal]
  - Dyspnoea exertional [Fatal]
  - Proteinuria [Fatal]
  - Nephrotic syndrome [Fatal]
  - Blood creatinine increased [Fatal]
  - Proteinuria [Fatal]
  - Polyuria [Fatal]
  - Haemoglobin decreased [Fatal]
  - Fatigue [Fatal]
  - Overdose [Fatal]
